FAERS Safety Report 13230473 (Version 1)
Quarter: 2017Q1

REPORT INFORMATION
  Report Type: Spontaneous
  Country: GB (occurrence: GB)
  Receive Date: 20170214
  Receipt Date: 20170214
  Transmission Date: 20170428
  Serious: Yes (Other)
  Sender: FDA-Public Use
  Company Number: GB-PFIZER INC-2017057873

PATIENT
  Sex: Female

DRUGS (3)
  1. CIPROFLOXACIN (DR REDDY?S LABORATORIES) [Suspect]
     Active Substance: CIPROFLOXACIN
     Indication: STAPHYLOCOCCAL INFECTION
     Dosage: 500 MG, 2X/DAY (FILM COATED TABLET) 7 DAY COURSE
     Route: 048
  2. CIPROFLOXACIN (DR REDDY?S LABORATORIES) [Suspect]
     Active Substance: CIPROFLOXACIN
     Indication: ESCHERICHIA URINARY TRACT INFECTION
     Dosage: 250 MG, 2X/DAY (FILM COATED TABLET) 7 DAY COURSE
     Route: 048
  3. IBUPROFEN. [Suspect]
     Active Substance: IBUPROFEN
     Dosage: UNK

REACTIONS (2)
  - Staphylococcal infection [Unknown]
  - Malaise [Unknown]
